FAERS Safety Report 18702071 (Version 1)
Quarter: 2021Q1

REPORT INFORMATION
  Report Type: Report from Study
  Country: US (occurrence: US)
  Receive Date: 20210105
  Receipt Date: 20210105
  Transmission Date: 20210419
  Serious: Yes (Hospitalization)
  Sender: FDA-Public Use
  Company Number: US-JNJFOC-20201218019

PATIENT
  Age: 81 Year
  Sex: Male
  Weight: 72.19 kg

DRUGS (1)
  1. EPOPROSTENOL SODIUM. [Suspect]
     Active Substance: EPOPROSTENOL SODIUM
     Indication: PULMONARY ARTERIAL HYPERTENSION
     Route: 042

REACTIONS (7)
  - Complication associated with device [Recovered/Resolved]
  - Syncope [Unknown]
  - Dyspnoea exertional [Not Recovered/Not Resolved]
  - Haematuria [Unknown]
  - Urinary retention [Unknown]
  - Platelet disorder [Unknown]
  - Gait disturbance [Not Recovered/Not Resolved]

NARRATIVE: CASE EVENT DATE: 20201126
